FAERS Safety Report 8230614-2 (Version None)
Quarter: 2012Q1

REPORT INFORMATION
  Report Type: 
  Country: None (occurrence: None)
  Receive Date: 20120322
  Receipt Date: 20120322
  Transmission Date: 20120608
  Serious: Yes (Hospitalization)
  Sender: FDA-Public Use
  Company Number: None

PATIENT
  Sex: Female
  Weight: 100.91 kg

DRUGS (1)
  1. CISPLATIN [Suspect]
     Dosage: 70 MG

REACTIONS (13)
  - DIARRHOEA [None]
  - HAEMOGLOBIN DECREASED [None]
  - VOMITING [None]
  - HAEMATOCRIT DECREASED [None]
  - PLATELET COUNT DECREASED [None]
  - BLOOD MAGNESIUM DECREASED [None]
  - BLOOD BILIRUBIN INCREASED [None]
  - BLOOD POTASSIUM DECREASED [None]
  - ALANINE AMINOTRANSFERASE INCREASED [None]
  - BLOOD CALCIUM DECREASED [None]
  - BLOOD ALBUMIN DECREASED [None]
  - NAUSEA [None]
  - ABDOMINAL PAIN [None]
